FAERS Safety Report 19155729 (Version 1)
Quarter: 2021Q2

REPORT INFORMATION
  Report Type: Spontaneous
  Country: US (occurrence: US)
  Receive Date: 20210419
  Receipt Date: 20210419
  Transmission Date: 20210717
  Serious: Yes (Hospitalization, Other)
  Sender: FDA-Public Use
  Company Number: US-NORTHSTAR HEALTHCARE HOLDINGS-US-2021NSR000017

PATIENT
  Age: 2 Year
  Sex: Male

DRUGS (2)
  1. BACLOFEN. [Suspect]
     Active Substance: BACLOFEN
     Indication: MUSCLE SPASTICITY
     Dosage: 0.25 ML (2.5MG), TID
     Route: 065
  2. BACLOFEN. [Suspect]
     Active Substance: BACLOFEN
     Dosage: 0.5 ML (5 MG), TID
     Route: 065

REACTIONS (6)
  - Bradypnoea [Recovered/Resolved]
  - Drug level above therapeutic [Recovered/Resolved]
  - Accidental overdose [Recovered/Resolved]
  - Mental status changes [Recovered/Resolved]
  - Hyporesponsive to stimuli [Recovered/Resolved]
  - Product use issue [Unknown]
